FAERS Safety Report 6412975-X (Version None)
Quarter: 2009Q4

REPORT INFORMATION
  Report Type: 
  Country: None (occurrence: None)
  Receive Date: 20091023
  Receipt Date: 20091014
  Transmission Date: 20100525
  Serious: Yes (Other)
  Sender: FDA-Public Use
  Company Number: PHHY2009US44577

PATIENT
  Age: 53 Year
  Sex: Male

DRUGS (1)
  1. IMATINIB MESYLATE [Suspect]
     Indication: CHRONIC MYELOID LEUKAEMIA

REACTIONS (5)
  - ABDOMINAL PAIN [None]
  - BURKITT'S LYMPHOMA [None]
  - GASTRIC ULCER [None]
  - HAEMATOCHEZIA [None]
  - STOMACH MASS [None]
